FAERS Safety Report 6915998-7 (Version None)
Quarter: 2010Q3

REPORT INFORMATION
  Report Type: 
  Country: None (occurrence: None)
  Receive Date: 20100809
  Receipt Date: 20100809
  Transmission Date: 20110219
  Serious: Yes (Life-Threatening)
  Sender: FDA-Public Use
  Company Number: None

PATIENT
  Age: 56 Year
  Sex: Female
  Weight: 107.0489 kg

DRUGS (3)
  1. XANAFLEX 4MG UNKNOWN [Suspect]
     Indication: MUSCLE RELAXANT THERAPY
     Dosage: 2 AT BEDTIME PO
     Route: 048
  2. XANAFLEX 4MG UNKNOWN [Suspect]
     Indication: SPINAL OSTEOARTHRITIS
     Dosage: 2 AT BEDTIME PO
     Route: 048
  3. AMLODIPINE [Suspect]
     Indication: HYPERTENSION
     Dosage: 1 DAILY PO
     Route: 048
     Dates: start: 20100722, end: 20100804

REACTIONS (5)
  - ASTHENIA [None]
  - ATRIOVENTRICULAR BLOCK COMPLETE [None]
  - DRUG INTERACTION [None]
  - FATIGUE [None]
  - HEART RATE DECREASED [None]
